FAERS Safety Report 17403413 (Version 2)
Quarter: 2020Q2

REPORT INFORMATION
  Report Type: Report from Study
  Country: US (occurrence: US)
  Receive Date: 20200211
  Receipt Date: 20200421
  Transmission Date: 20200713
  Serious: Yes (Hospitalization)
  Sender: FDA-Public Use
  Company Number: US-ACTELION-A-NJ2020-201431

PATIENT
  Age: 59 Year
  Sex: Female

DRUGS (12)
  1. FERROUS SULFATE. [Concomitant]
     Active Substance: FERROUS SULFATE
     Dosage: 325 MG
     Route: 048
  2. DESVENLAFAXINE. [Concomitant]
     Active Substance: DESVENLAFAXINE
     Dosage: 100 MG, QD
     Route: 048
  3. CLONAZEPAM. [Concomitant]
     Active Substance: CLONAZEPAM
     Indication: ANXIETY
     Dosage: 0.5 MG
  4. ARIPIPRAZOLE. [Concomitant]
     Active Substance: ARIPIPRAZOLE
     Dosage: 10 MG, QD
     Route: 048
  5. ALBUTEROL. [Concomitant]
     Active Substance: ALBUTEROL
     Dosage: 2.5 MG, Q6HRS
  6. UPTRAVI [Suspect]
     Active Substance: SELEXIPAG
     Indication: PRODUCT USED FOR UNKNOWN INDICATION
     Dosage: 1200 MCG, BID
     Route: 048
  7. SILDENAFIL. [Concomitant]
     Active Substance: SILDENAFIL
     Dosage: 20 MG, TID
     Route: 048
  8. OXYGEN. [Concomitant]
     Active Substance: OXYGEN
     Dosage: 4 L
  9. BUPROPION. [Concomitant]
     Active Substance: BUPROPION
     Dosage: 150 MG, QD
     Route: 048
  10. AMLODIPINE [Concomitant]
     Active Substance: AMLODIPINE BESYLATE
     Dosage: 1 TABLET
     Route: 048
  11. PANTOPRAZOLE [Concomitant]
     Active Substance: PANTOPRAZOLE
     Dosage: 40 MG, QD
     Route: 048
  12. FLUTICASONE FUROATE W/VILANTEROL [Concomitant]
     Active Substance: FLUTICASONE FUROATE\VILANTEROL TRIFENATATE
     Dosage: 1 PUFF, QD

REACTIONS (3)
  - Chronic obstructive pulmonary disease [Recovering/Resolving]
  - Respiratory failure [Unknown]
  - Acute respiratory failure [Unknown]

NARRATIVE: CASE EVENT DATE: 20200114
